FAERS Safety Report 22126637 (Version 2)
Quarter: 2023Q2

REPORT INFORMATION
  Report Type: Spontaneous
  Country: US (occurrence: US)
  Receive Date: 20230322
  Receipt Date: 20230508
  Transmission Date: 20230722
  Serious: No
  Sender: FDA-Public Use
  Company Number: US-TAKEDA-2023TUS030111

PATIENT
  Sex: Female
  Weight: 54 kg

DRUGS (2)
  1. MOTEGRITY [Suspect]
     Active Substance: PRUCALOPRIDE SUCCINATE
     Indication: Gastrointestinal bacterial overgrowth
     Route: 065
     Dates: start: 20230315, end: 20230315
  2. ZYRTEC [Concomitant]
     Active Substance: CETIRIZINE HYDROCHLORIDE
     Indication: Multiple allergies

REACTIONS (3)
  - Diarrhoea [Unknown]
  - Incorrect dose administered [Unknown]
  - Product use in unapproved indication [Unknown]
